FAERS Safety Report 9924831 (Version 1)
Quarter: 2014Q1

REPORT INFORMATION
  Report Type: Spontaneous
  Country: US (occurrence: None)
  Receive Date: 20140221
  Receipt Date: 20140221
  Transmission Date: 20141002
  Serious: Yes (Hospitalization)
  Sender: FDA-Public Use
  Company Number: US-000927

PATIENT
  Age: 44 Year
  Sex: Male

DRUGS (2)
  1. GATTEX [Suspect]
     Dosage: 0.37 ML QD, STREN/VOLUM: 0.37 / FREQU: ONCE A DAY SUBCUTANEOUS
     Route: 058
     Dates: end: 20140202
  2. SOLUTION FOR PARENTERAL NUTRITION [Concomitant]

REACTIONS (1)
  - Device related infection [None]
